FAERS Safety Report 15941613 (Version 1)
Quarter: 2019Q1

REPORT INFORMATION
  Report Type: Spontaneous
  Country: US (occurrence: US)
  Receive Date: 20190208
  Receipt Date: 20190208
  Transmission Date: 20190417
  Serious: Yes (Hospitalization)
  Sender: FDA-Public Use
  Company Number: None

PATIENT
  Sex: Female

DRUGS (13)
  1. TACROLIMUS. [Suspect]
     Active Substance: TACROLIMUS
     Indication: RENAL TRANSPLANT
     Route: 048
     Dates: start: 20110311
  2. ABILIFY [Concomitant]
     Active Substance: ARIPIPRAZOLE
  3. CITALOPRAM [Concomitant]
     Active Substance: CITALOPRAM HYDROBROMIDE
  4. BENZTROPINE 1MG/ML [Concomitant]
  5. SYNTHROID [Concomitant]
     Active Substance: LEVOTHYROXINE SODIUM
  6. MYCOPHENOLATE [Suspect]
     Active Substance: MYCOPHENOLIC ACID
     Indication: RENAL TRANSPLANT
     Route: 048
     Dates: start: 20110311
  7. BACTRIM 400-80MG [Concomitant]
  8. ASPIRIN 81MG [Concomitant]
     Active Substance: ASPIRIN
  9. PROGRAF [Concomitant]
     Active Substance: TACROLIMUS\TACROLIMUS ANHYDROUS
     Dates: start: 20110310
  10. METOPROL TAR 25MG [Concomitant]
  11. MAGOX 400MG [Concomitant]
  12. MULTI VITAMN TAB MINERALS [Concomitant]
  13. TRICOR 48MG [Concomitant]

REACTIONS (1)
  - Hospitalisation [None]
